FAERS Safety Report 15564785 (Version 1)
Quarter: 2018Q4

REPORT INFORMATION
  Report Type: Spontaneous
  Country: US (occurrence: US)
  Receive Date: 20181029
  Receipt Date: 20181029
  Transmission Date: 20190205
  Serious: Yes (Other)
  Sender: FDA-Public Use
  Company Number: None

PATIENT
  Age: 31 Year
  Sex: Female
  Weight: 56.25 kg

DRUGS (3)
  1. SERTRALINE [Suspect]
     Active Substance: SERTRALINE HYDROCHLORIDE
     Indication: ANXIETY DISORDER
     Dosage: ?          QUANTITY:1 TABLET(S);?
     Route: 048
     Dates: start: 20180908, end: 20181026
  2. SERTRALINE [Suspect]
     Active Substance: SERTRALINE HYDROCHLORIDE
     Indication: ANXIETY
     Dosage: ?          QUANTITY:1 TABLET(S);?
     Route: 048
     Dates: start: 20180908, end: 20181026
  3. ISIBLOOM [Concomitant]
     Active Substance: DESOGESTREL\ETHINYL ESTRADIOL

REACTIONS (14)
  - Depression [None]
  - Feeling abnormal [None]
  - Blood pressure increased [None]
  - Suicidal ideation [None]
  - Withdrawal syndrome [None]
  - Product substitution issue [None]
  - Hyperacusis [None]
  - Fatigue [None]
  - Palpitations [None]
  - Panic attack [None]
  - Migraine [None]
  - Anxiety [None]
  - Headache [None]
  - Photophobia [None]

NARRATIVE: CASE EVENT DATE: 20181025
